FAERS Safety Report 9743315 (Version 2)
Quarter: 2016Q2

REPORT INFORMATION
  Report Type: Spontaneous
  Country: US (occurrence: US)
  Receive Date: 20131210
  Receipt Date: 20160428
  Transmission Date: 20160815
  Serious: Yes (Death, Other)
  Sender: FDA-Public Use
  Company Number: US-PURDUE-USA-2013-0109276

PATIENT
  Age: 51 Year
  Sex: Female

DRUGS (4)
  1. OXYCONTIN [Suspect]
     Active Substance: OXYCODONE HYDROCHLORIDE
     Dosage: 20 MG, TID
     Route: 048
     Dates: start: 20101216
  2. CLONAZEPAM. [Suspect]
     Active Substance: CLONAZEPAM
     Indication: ANXIETY
     Route: 048
  3. OXYCONTIN [Suspect]
     Active Substance: OXYCODONE HYDROCHLORIDE
     Indication: PAIN
     Dosage: 20 MG, BID
     Route: 048
     Dates: start: 20101214
  4. OXYCONTIN [Suspect]
     Active Substance: OXYCODONE HYDROCHLORIDE
     Dosage: 30 MG, TID
     Route: 048
     Dates: start: 201012

REACTIONS (6)
  - Overdose [Fatal]
  - Cardio-respiratory arrest [Fatal]
  - Unresponsive to stimuli [Not Recovered/Not Resolved]
  - Sedation [Unknown]
  - Hypopnoea [Not Recovered/Not Resolved]
  - Pulse abnormal [Not Recovered/Not Resolved]

NARRATIVE: CASE EVENT DATE: 201012
